FAERS Safety Report 4787173-6 (Version None)
Quarter: 2005Q4

REPORT INFORMATION
  Report Type: 
  Country: None (occurrence: None)
  Receive Date: 20051004
  Receipt Date: 20050927
  Transmission Date: 20060501
  Serious: Yes (Other)
  Sender: FDA-Public Use
  Company Number: NL-MERCK-0509NLD00026

PATIENT
  Age: 59 Year
  Sex: Female

DRUGS (4)
  1. ZETIA [Suspect]
     Indication: HYPERCHOLESTEROLAEMIA
     Route: 048
     Dates: start: 20041209, end: 20050430
  2. SIMVASTATIN [Concomitant]
     Route: 048
     Dates: start: 19930408, end: 20041208
  3. SIMVASTATIN [Concomitant]
     Route: 048
     Dates: start: 20041209, end: 20050430
  4. SIMVASTATIN [Concomitant]
     Route: 048
     Dates: start: 20050501

REACTIONS (3)
  - OBSESSIVE-COMPULSIVE DISORDER [None]
  - SLEEP DISORDER [None]
  - SUICIDAL IDEATION [None]
